FAERS Safety Report 6655090-2 (Version None)
Quarter: 2010Q1

REPORT INFORMATION
  Report Type: 
  Country: None (occurrence: None)
  Receive Date: 20100329
  Receipt Date: 20100313
  Transmission Date: 20100710
  Serious: Yes (Hospitalization, Other)
  Sender: FDA-Public Use
  Company Number: US-JNJFOC-20090707146

PATIENT
  Sex: Male

DRUGS (1)
  1. LEVAQUIN [Suspect]
     Indication: POOR DENTAL CONDITION
     Route: 065

REACTIONS (5)
  - ARTHRITIS [None]
  - LIGAMENT INJURY [None]
  - MENISCUS LESION [None]
  - ROTATOR CUFF SYNDROME [None]
  - TENDON RUPTURE [None]
